FAERS Safety Report 12878319 (Version 4)
Quarter: 2016Q4

REPORT INFORMATION
  Report Type: Report from Study
  Country: FR (occurrence: FR)
  Receive Date: 20161024
  Receipt Date: 20161228
  Transmission Date: 20170207
  Serious: Yes (Death, Hospitalization)
  Sender: FDA-Public Use
  Company Number: FR-BAYER-2016-143155

PATIENT
  Age: 66 Year
  Sex: Female
  Weight: 53 kg

DRUGS (14)
  1. STIVARGA [Suspect]
     Active Substance: REGORAFENIB
     Indication: COLORECTAL CANCER METASTATIC
     Dosage: TOTAL DAILY DOSE 80 MG
     Route: 048
     Dates: start: 20160801, end: 20160828
  2. MACROGOL 4000 [Concomitant]
     Active Substance: POLYETHYLENE GLYCOL 4000
     Dosage: DAILY DOSE 10 G
     Dates: start: 2015
  3. STIVARGA [Suspect]
     Active Substance: REGORAFENIB
     Indication: COLORECTAL CANCER METASTATIC
     Dosage: TOTAL DAILY DOSE 120MG
     Route: 048
     Dates: start: 20160829
  4. SERESTA [Concomitant]
     Active Substance: OXAZEPAM
     Dosage: DAILY DOSE 10 MG
     Dates: start: 2013
  5. ACUPAN [Concomitant]
     Active Substance: NEFOPAM HYDROCHLORIDE
     Dosage: DAILY DOSE 80 MG
     Dates: start: 2015
  6. SMECTA [SMECTITE] [Concomitant]
     Dosage: UNK
     Dates: start: 201609, end: 20160915
  7. DAFALGAN [Concomitant]
     Active Substance: ACETAMINOPHEN
     Dosage: DAILY DOSE 3 G
     Dates: start: 2015
  8. OMEPRAZOLE BAYER 10 MG [Concomitant]
     Active Substance: OMEPRAZOLE
     Dosage: DAILY DOSE 20 MG
     Dates: start: 2015
  9. STIVARGA [Suspect]
     Active Substance: REGORAFENIB
     Indication: COLORECTAL CANCER METASTATIC
     Dosage: TOTAL DAILY DOSE 160MG
     Route: 048
     Dates: start: 20160606, end: 20160623
  10. LYRICA [Concomitant]
     Active Substance: PREGABALIN
     Dosage: DAILY DOSE 200 MG
     Dates: start: 20120829
  11. TRIMEBUTINE [Concomitant]
     Active Substance: TRIMEBUTINE
     Dosage: DAILY DOSE 600 MG
     Dates: start: 2015
  12. ATENOLOL. [Concomitant]
     Active Substance: ATENOLOL
     Dosage: DAILY DOSE 25 MG
     Dates: start: 2013
  13. ZOLPIDEM [Concomitant]
     Active Substance: ZOLPIDEM\ZOLPIDEM TARTRATE
     Dosage: DAILY DOSE 10 MG
     Dates: start: 201301
  14. DOMPERIDONE [Concomitant]
     Active Substance: DOMPERIDONE
     Dosage: DAILY DOSE 30 MG
     Dates: start: 2015

REACTIONS (2)
  - General physical health deterioration [Recovered/Resolved]
  - General physical health deterioration [Fatal]

NARRATIVE: CASE EVENT DATE: 20160625
